FAERS Safety Report 5086239-3 (Version None)
Quarter: 2006Q3

REPORT INFORMATION
  Report Type: 
  Country: None (occurrence: None)
  Receive Date: 20060821
  Receipt Date: 20060821
  Transmission Date: 20061208
  Serious: No
  Sender: FDA-Public Use
  Company Number: None

PATIENT
  Age: 39 Year
  Sex: Female

DRUGS (1)
  1. BENTYL [Suspect]
     Dosage: INJECTABLE

REACTIONS (10)
  - DIZZINESS [None]
  - DRUG PRESCRIBING ERROR [None]
  - HEADACHE [None]
  - INCORRECT ROUTE OF DRUG ADMINISTRATION [None]
  - MEDICATION ERROR [None]
  - NERVE INJURY [None]
  - PAIN [None]
  - PAIN IN EXTREMITY [None]
  - PARALYSIS [None]
  - SYNCOPE [None]
